FAERS Safety Report 4792072-X (Version None)
Quarter: 2005Q4

REPORT INFORMATION
  Report Type: 
  Country: None (occurrence: None)
  Receive Date: 20051007
  Receipt Date: 20050720
  Transmission Date: 20060501
  Serious: Yes (Hospitalization, Disabling)
  Sender: FDA-Public Use
  Company Number: US-MERCK-0507USA03134

PATIENT
  Age: 56 Year
  Sex: Female
  Weight: 75 kg

DRUGS (2)
  1. VIOXX [Suspect]
     Indication: ARTHRITIS
     Route: 048
     Dates: start: 20000101, end: 20020101
  2. CELEBREX [Concomitant]
     Route: 065

REACTIONS (4)
  - CARDIAC DISORDER [None]
  - CEREBROVASCULAR ACCIDENT [None]
  - EMOTIONAL DISTRESS [None]
  - MYOCARDIAL INFARCTION [None]
